FAERS Safety Report 6442607-6 (Version None)
Quarter: 2009Q4

REPORT INFORMATION
  Report Type: 
  Country: None (occurrence: None)
  Receive Date: 20091117
  Receipt Date: 20091106
  Transmission Date: 20100525
  Serious: No
  Sender: FDA-Public Use
  Company Number: US-JNJFOC-20091102871

PATIENT
  Sex: Male
  Weight: 63.5 kg

DRUGS (4)
  1. DURAGESIC-100 [Suspect]
     Route: 062
  2. DURAGESIC-100 [Suspect]
     Route: 062
  3. DURAGESIC-100 [Suspect]
     Indication: NECK PAIN
     Route: 062
  4. WELLBUTRIN [Concomitant]
     Indication: ANXIETY
     Route: 048

REACTIONS (3)
  - DRUG INEFFECTIVE [None]
  - DYSPNOEA [None]
  - INAPPROPRIATE SCHEDULE OF DRUG ADMINISTRATION [None]
